FAERS Safety Report 5419462-6 (Version None)
Quarter: 2007Q3

REPORT INFORMATION
  Report Type: 
  Country: None (occurrence: None)
  Receive Date: 20070820
  Receipt Date: 20070807
  Transmission Date: 20080115
  Serious: Yes (Life-Threatening, Hospitalization, Disabling)
  Sender: FDA-Public Use
  Company Number: B0483685A

PATIENT
  Age: 79 Year
  Sex: Male
  Weight: 70 kg

DRUGS (2)
  1. SERETIDE [Suspect]
     Indication: ASTHMA
     Route: 055
     Dates: end: 20050101
  2. SOLU-MEDROL [Concomitant]
     Indication: ASTHMA
     Dosage: 15MG PER DAY
     Route: 048
     Dates: start: 20060401

REACTIONS (1)
  - OESOPHAGEAL CANDIDIASIS [None]
